FAERS Safety Report 14210648 (Version 2)
Quarter: 2018Q1

REPORT INFORMATION
  Report Type: Report from Study
  Country: US (occurrence: US)
  Receive Date: 20171121
  Receipt Date: 20180108
  Transmission Date: 20180508
  Serious: Yes (Hospitalization, Other)
  Sender: FDA-Public Use
  Company Number: PHHO2017US014452

PATIENT
  Age: 16 Month
  Sex: Male
  Weight: 10.6 kg

DRUGS (9)
  1. FLUDARABINE [Concomitant]
     Active Substance: FLUDARABINE PHOSPHATE
     Indication: ACUTE LYMPHOCYTIC LEUKAEMIA
     Dosage: 30 MG/M2
     Route: 065
     Dates: start: 20170925, end: 20170928
  2. KYMRIAH [Suspect]
     Active Substance: TISAGENLECLEUCEL
     Indication: ACUTE LYMPHOCYTIC LEUKAEMIA
     Dosage: 1.25E+06 CART19 CELLS/KG (10%)
     Route: 042
     Dates: start: 20171003, end: 20171003
  3. LEVOFLOXACIN. [Concomitant]
     Active Substance: LEVOFLOXACIN
     Indication: PRODUCT USED FOR UNKNOWN INDICATION
     Dosage: 105 MG, BID
     Route: 048
     Dates: start: 20170925, end: 20171012
  4. PENTAMIDINE ISETHIONATE. [Concomitant]
     Active Substance: PENTAMIDINE ISETHIONATE
     Indication: PRODUCT USED FOR UNKNOWN INDICATION
     Dosage: 37 MG, Q3-4 WEEKS
     Route: 042
     Dates: start: 20170724
  5. VORICONAZOLE. [Concomitant]
     Active Substance: VORICONAZOLE
     Indication: PRODUCT USED FOR UNKNOWN INDICATION
     Dosage: 92 MG, BID
     Route: 048
     Dates: start: 20170925
  6. ACYCLOVIR. [Concomitant]
     Active Substance: ACYCLOVIR
     Indication: PRODUCT USED FOR UNKNOWN INDICATION
     Dosage: 80 MG, TID
     Route: 048
     Dates: start: 20170724, end: 20171008
  7. ALLOPURINOL. [Concomitant]
     Active Substance: ALLOPURINOL
     Indication: PRODUCT USED FOR UNKNOWN INDICATION
     Dosage: 54 MG, BID
     Route: 048
     Dates: start: 20170927
  8. KYMRIAH [Suspect]
     Active Substance: TISAGENLECLEUCEL
     Dosage: 3.75E+07 CART19 CELLS/KG (30%)
     Route: 042
     Dates: start: 20171004, end: 20171004
  9. CYCLOPHOSPHAMIDE. [Concomitant]
     Active Substance: CYCLOPHOSPHAMIDE
     Indication: ACUTE LYMPHOCYTIC LEUKAEMIA
     Dosage: 500 MG/M2
     Route: 065
     Dates: start: 20170925, end: 20170926

REACTIONS (10)
  - Cytokine release syndrome [Recovered/Resolved]
  - Disseminated intravascular coagulation [Recovered/Resolved]
  - Cytokine release syndrome [Recovered/Resolved]
  - Hypertension [Recovered/Resolved]
  - Cytokine release syndrome [Recovered/Resolved]
  - Dyspnoea [Recovered/Resolved]
  - Acute kidney injury [Recovered/Resolved]
  - Febrile neutropenia [Recovered/Resolved]
  - Acidosis [Recovered/Resolved]
  - Leukocytosis [Recovered/Resolved]

NARRATIVE: CASE EVENT DATE: 20171006
